FAERS Safety Report 4343133-0 (Version None)
Quarter: 2004Q2

REPORT INFORMATION
  Report Type: 
  Country: None (occurrence: None)
  Receive Date: 20040416
  Receipt Date: 20040405
  Transmission Date: 20050107
  Serious: Yes (Other)
  Sender: FDA-Public Use
  Company Number: US-JNJFOC-20040402551

PATIENT
  Age: 74 Year
  Sex: Male
  Weight: 71.2147 kg

DRUGS (1)
  1. REMICADE [Suspect]
     Indication: RHEUMATOID ARTHRITIS
     Dosage: 650 MG, INTRAVENOUS
     Route: 042
     Dates: start: 20040308

REACTIONS (1)
  - PROSTATE CANCER [None]
